FAERS Safety Report 6975324-4 (Version None)
Quarter: 2010Q3

REPORT INFORMATION
  Report Type: 
  Country: None (occurrence: None)
  Receive Date: 20100910
  Receipt Date: 20090226
  Transmission Date: 20110219
  Serious: No
  Sender: FDA-Public Use
  Company Number: US-WYE-H08376709

PATIENT
  Sex: Female

DRUGS (4)
  1. PRISTIQ [Suspect]
     Indication: DEPRESSION
     Route: 048
     Dates: start: 20090212
  2. DIOVAN [Concomitant]
  3. ALCOHOL [Interacting]
     Dosage: ^A GLASS OF WINE^
     Route: 048
  4. HYDROCHLOROTHIAZIDE [Concomitant]

REACTIONS (2)
  - DRUG INTERACTION [None]
  - URTICARIA [None]
